FAERS Safety Report 8636995 (Version 3)
Quarter: 2012Q4

REPORT INFORMATION
  Report Type: 
  Country: DK (occurrence: IE)
  Receive Date: 20120626
  Receipt Date: 20121129
  Transmission Date: 20130627
  Serious: Yes (Hospitalization)
  Sender: FDA-Public Use
  Company Number: IE-FRI-1000036597

PATIENT
  Age: 41 Year
  Sex: Male

DRUGS (1)
  1. ESCITALOPRAM [Suspect]
     Dosage: 15 mg
     Route: 048

REACTIONS (3)
  - Rhabdomyolysis [Recovered/Resolved]
  - Grand mal convulsion [Recovered/Resolved]
  - Hyponatraemia [Recovered/Resolved]
